FAERS Safety Report 12547912 (Version 1)
Quarter: 2016Q3

REPORT INFORMATION
  Report Type: Spontaneous
  Country: US (occurrence: None)
  Receive Date: 20160711
  Receipt Date: 20160711
  Transmission Date: 20161109
  Serious: No
  Sender: FDA-Public Use
  Company Number: None

PATIENT
  Age: 3 Year
  Sex: Male
  Weight: 25.4 kg

DRUGS (2)
  1. MELATONIN [Concomitant]
     Active Substance: MELATONIN
  2. MIRALAX [Suspect]
     Active Substance: POLYETHYLENE GLYCOL 3350
     Indication: CONSTIPATION
     Dosage: 1 CAPFUL TWICE A DAY TAKEN BY MOUTH
     Route: 048
     Dates: start: 20100101, end: 20130106

REACTIONS (9)
  - Encopresis [None]
  - Tremor [None]
  - Crying [None]
  - Abdominal pain upper [None]
  - Anger [None]
  - Obsessive-compulsive personality disorder [None]
  - Pallor [None]
  - Constipation [None]
  - Dark circles under eyes [None]

NARRATIVE: CASE EVENT DATE: 20100107
